FAERS Safety Report 6592667-7 (Version None)
Quarter: 2010Q1

REPORT INFORMATION
  Report Type: 
  Country: None (occurrence: None)
  Receive Date: 20100222
  Receipt Date: 20100210
  Transmission Date: 20100710
  Serious: Yes (Hospitalization)
  Sender: FDA-Public Use
  Company Number: US-BIOGENIDEC-2009BI009535

PATIENT
  Age: 50 Year
  Sex: Female

DRUGS (9)
  1. AVONEX [Suspect]
     Indication: MULTIPLE SCLEROSIS
     Route: 030
  2. AVONEX [Suspect]
     Route: 030
  3. MESTINON [Concomitant]
  4. VITAMIN D [Concomitant]
  5. CARBAMAZEPINE [Concomitant]
  6. BACLOFEN [Concomitant]
  7. OXYCODONE HCL [Concomitant]
     Indication: NEURALGIA
  8. OPIOIDS (NOS) [Concomitant]
     Indication: NEURALGIA
  9. VISTARIL [Concomitant]

REACTIONS (7)
  - CARDIAC PACEMAKER INSERTION [None]
  - CARDIAC PACEMAKER REMOVAL [None]
  - HYPERAESTHESIA [None]
  - HYPERREFLEXIA [None]
  - MULTIPLE SCLEROSIS RELAPSE [None]
  - NEURALGIA [None]
  - ORTHOSTATIC HYPOTENSION [None]
